FAERS Safety Report 10062980 (Version 1)
Quarter: 2014Q1

REPORT INFORMATION
  Report Type: Spontaneous
  Country: US (occurrence: None)
  Receive Date: 20140318
  Receipt Date: 20140318
  Transmission Date: 20141002
  Serious: Yes (Other)
  Sender: FDA-Public Use
  Company Number: 163-21660-13121047

PATIENT
  Age: 64 Year
  Sex: Female
  Weight: 61.24 kg

DRUGS (13)
  1. ABRAXANE [Suspect]
     Indication: PANCREATIC CARCINOMA
     Dates: start: 20131119
  2. GEMZAR [Concomitant]
  3. ATIVAN [Concomitant]
  4. COMPAZINE [Concomitant]
  5. MEDROL [Concomitant]
  6. DEXAMETHASONE (DEXAMETHASONE) (UNKNOWN) [Concomitant]
  7. COLACE [Concomitant]
  8. LORATADINE [Concomitant]
  9. BENTYL [Concomitant]
  10. OMEPRAZOLE [Concomitant]
  11. ASPIRIN (ACETYLSALICYLIC ACID) (UNKNOWN) (ACETYLSALICYLIC ACID) [Concomitant]
  12. ONDANSETRON [Concomitant]
  13. OXYCODONE (OXYCODONE) (UNKNOWN) (OXYCODONE) [Concomitant]

REACTIONS (1)
  - Rash pruritic [None]
